FAERS Safety Report 21399395 (Version 1)
Quarter: 2022Q4

REPORT INFORMATION
  Report Type: Spontaneous
  Country: AU (occurrence: AU)
  Receive Date: 20221001
  Receipt Date: 20221001
  Transmission Date: 20230113
  Serious: Yes (Other)
  Sender: FDA-Public Use
  Company Number: AU-NOVARTISPH-NVSC2022AU222138

PATIENT
  Age: 60 Year
  Sex: Male

DRUGS (1)
  1. HYDROCHLOROTHIAZIDE\OLMESARTAN MEDOXOMIL [Suspect]
     Active Substance: HYDROCHLOROTHIAZIDE\OLMESARTAN MEDOXOMIL
     Indication: Hypertension
     Dosage: UNK
     Route: 065

REACTIONS (10)
  - Schnitzler^s syndrome [Unknown]
  - Joint swelling [Unknown]
  - Blood immunoglobulin M increased [Unknown]
  - C-reactive protein increased [Unknown]
  - Red blood cell sedimentation rate increased [Unknown]
  - Peripheral swelling [Unknown]
  - Arthralgia [Unknown]
  - Fatigue [Unknown]
  - Urticaria [Unknown]
  - Drug ineffective [Unknown]
